FAERS Safety Report 5302987-1 (Version None)
Quarter: 2007Q2

REPORT INFORMATION
  Report Type: 
  Country: None (occurrence: None)
  Receive Date: 20070413
  Receipt Date: 20070403
  Transmission Date: 20071010
  Serious: Yes (Death, Hospitalization)
  Sender: FDA-Public Use
  Company Number: CERZ-11598

PATIENT
  Age: 12 Month
  Sex: Male
  Weight: 6.75 kg

DRUGS (1)
  1. CEREZYME [Suspect]
     Indication: GAUCHER'S DISEASE
     Dosage: 400 UNITS Q2WKS IV
     Route: 042
     Dates: start: 20060601, end: 20070213

REACTIONS (5)
  - CATHETER RELATED INFECTION [None]
  - DISEASE PROGRESSION [None]
  - GAUCHER'S DISEASE [None]
  - PNEUMONIA ASPIRATION [None]
  - REFUSAL OF TREATMENT BY RELATIVE [None]
